FAERS Safety Report 5788317-X (Version None)
Quarter: 2008Q2

REPORT INFORMATION
  Report Type: 
  Country: None (occurrence: None)
  Receive Date: 20080623
  Receipt Date: 20080612
  Transmission Date: 20081010
  Serious: Yes (Other)
  Sender: FDA-Public Use
  Company Number: CHPA2008US03917

PATIENT
  Age: 40 Year
  Sex: Female

DRUGS (1)
  1. THERAFLU DAYTIME SEVERE COLD WARMING SYRUP (PARACETAMOL, DEXTROMORPHAN [Suspect]
     Indication: COUGH
     Dosage: 3 TSP, BID, ORAL
     Route: 048
     Dates: start: 20080220

REACTIONS (1)
  - ASTHMA [None]
